FAERS Safety Report 25306883 (Version 7)
Quarter: 2025Q4

REPORT INFORMATION
  Report Type: Report from Study
  Country: US (occurrence: US)
  Receive Date: 20250513
  Receipt Date: 20251214
  Transmission Date: 20260119
  Serious: Yes (Hospitalization, Other)
  Sender: TAKEDA
  Company Number: US-TAKEDA-2024TUS051451

PATIENT
  Age: 38 Year
  Sex: Female

DRUGS (4)
  1. VEDOLIZUMAB [Suspect]
     Active Substance: VEDOLIZUMAB
     Indication: Colitis ulcerative
     Dosage: 300 MILLIGRAM
  2. VEDOLIZUMAB [Suspect]
     Active Substance: VEDOLIZUMAB
     Indication: Colitis ulcerative
     Dosage: 108 MILLIGRAM, Q2WEEKS
  3. VEDOLIZUMAB [Suspect]
     Active Substance: VEDOLIZUMAB
  4. TYLENOL [Suspect]
     Active Substance: ACETAMINOPHEN
     Indication: Product used for unknown indication
     Dosage: UNK

REACTIONS (38)
  - Colitis ulcerative [Unknown]
  - Syncope [Unknown]
  - Acute kidney injury [Unknown]
  - Loss of consciousness [Unknown]
  - Hepatic failure [Unknown]
  - Haemolytic anaemia [Unknown]
  - Fall [Unknown]
  - Iron deficiency anaemia [Unknown]
  - Toxicity to various agents [Unknown]
  - Septic shock [Unknown]
  - Vomiting [Unknown]
  - Nausea [Unknown]
  - Poor venous access [Unknown]
  - Arthritis [Unknown]
  - Nervousness [Unknown]
  - Illness [Unknown]
  - Eye disorder [Unknown]
  - Ligament sprain [Unknown]
  - Heavy menstrual bleeding [Unknown]
  - Faeces hard [Unknown]
  - Uterine leiomyoma [Unknown]
  - Depression [Unknown]
  - Faeces soft [Unknown]
  - Postural orthostatic tachycardia syndrome [Unknown]
  - Panic attack [Unknown]
  - Alopecia [Unknown]
  - Nail disorder [Unknown]
  - Myalgia [Unknown]
  - Hypersomnia [Unknown]
  - Limb injury [Unknown]
  - Mental status changes [Unknown]
  - Therapeutic reaction time decreased [Unknown]
  - Product dose omission issue [Unknown]
  - Hypersensitivity [Unknown]
  - Bronchitis [Unknown]
  - Arthralgia [Unknown]
  - Nasopharyngitis [Unknown]
  - Fatigue [Unknown]
